FAERS Safety Report 7065135-6 (Version None)
Quarter: 2010Q4

REPORT INFORMATION
  Report Type: 
  Country: None (occurrence: None)
  Receive Date: 20101022
  Receipt Date: 20101022
  Transmission Date: 20110411
  Serious: Yes (Hospitalization)
  Sender: FDA-Public Use
  Company Number: None

PATIENT
  Age: 21 Year
  Sex: Female
  Weight: 77.1115 kg

DRUGS (1)
  1. SKELAXIN [Suspect]
     Indication: MUSCLE TIGHTNESS
     Dosage: 800 MG 1/2 TAB AT NIGHT
     Dates: start: 20100929

REACTIONS (3)
  - DYSPNOEA [None]
  - LUNG DISORDER [None]
  - TREMOR [None]
